FAERS Safety Report 8024381-5 (Version None)
Quarter: 2012Q1

REPORT INFORMATION
  Report Type: 
  Country: None (occurrence: None)
  Receive Date: 20120105
  Receipt Date: 20120105
  Transmission Date: 20120608
  Serious: Yes (Other)
  Sender: FDA-Public Use
  Company Number: None

PATIENT
  Age: 56 Year
  Sex: Male
  Weight: 132.7 kg

DRUGS (1)
  1. DAPTOMYCIN [Suspect]
     Indication: LOCALISED INFECTION
     Dates: start: 20111215, end: 20111227

REACTIONS (4)
  - DYSPNOEA [None]
  - PYREXIA [None]
  - ALVEOLITIS ALLERGIC [None]
  - COUGH [None]
